FAERS Safety Report 17129779 (Version 1)
Quarter: 2019Q4

REPORT INFORMATION
  Report Type: Spontaneous
  Country: US (occurrence: US)
  Receive Date: 20191209
  Receipt Date: 20191209
  Transmission Date: 20200122
  Serious: Yes (Death, Hospitalization, Other)
  Sender: FDA-Public Use
  Company Number: US-ACTELION-A-CH2019-198928

PATIENT

DRUGS (8)
  1. BOSENTAN. [Suspect]
     Active Substance: BOSENTAN
     Indication: PULMONARY ARTERIAL HYPERTENSION
     Route: 048
  2. DIPYRIDAMOLE. [Concomitant]
     Active Substance: DIPYRIDAMOLE
  3. OXYGEN. [Concomitant]
     Active Substance: OXYGEN
  4. WARFARIN [Concomitant]
     Active Substance: WARFARIN
  5. SILDENAFIL. [Concomitant]
     Active Substance: SILDENAFIL
  6. EPOPROSTENOL SODIUM. [Suspect]
     Active Substance: EPOPROSTENOL SODIUM
     Indication: PULMONARY ARTERIAL HYPERTENSION
     Route: 042
  7. L-ARGININE [Concomitant]
     Active Substance: ARGININE
  8. TREPROSTINIL. [Concomitant]
     Active Substance: TREPROSTINIL
     Indication: PULMONARY ARTERIAL HYPERTENSION
     Route: 058

REACTIONS (17)
  - Hepatic enzyme increased [Unknown]
  - Drug ineffective [Unknown]
  - Balloon atrial septostomy [Unknown]
  - Lung transplant [Unknown]
  - Pulmonary arterial hypertension [Fatal]
  - Haemoptysis [Fatal]
  - Sepsis [Fatal]
  - Hypotension [Unknown]
  - Right ventricular failure [Fatal]
  - Condition aggravated [Fatal]
  - Embolism [Fatal]
  - Sudden death [Fatal]
  - Multiple organ dysfunction syndrome [Fatal]
  - Disease progression [Unknown]
  - Oedema peripheral [Unknown]
  - Therapy partial responder [Unknown]
  - Pulmonary haemorrhage [Fatal]
